FAERS Safety Report 18818843 (Version 1)
Quarter: 2021Q1

REPORT INFORMATION
  Report Type: Spontaneous
  Country: JP (occurrence: JP)
  Receive Date: 20210202
  Receipt Date: 20210202
  Transmission Date: 20210419
  Serious: Yes (Hospitalization, Other)
  Sender: FDA-Public Use
  Company Number: JP-LUNDBECK-DKLU3027555

PATIENT
  Age: 48 Year
  Sex: Male
  Weight: 52 kg

DRUGS (18)
  1. CLOBAZAM. [Suspect]
     Active Substance: CLOBAZAM
     Indication: SEIZURE
     Route: 048
  2. EXCEGRAN [Suspect]
     Active Substance: ZONISAMIDE
     Indication: EPILEPSY
  3. CLOBAZAM. [Suspect]
     Active Substance: CLOBAZAM
     Indication: HEMIPLEGIA
     Route: 048
  4. LAMOTRIGINE. [Concomitant]
     Active Substance: LAMOTRIGINE
     Route: 065
  5. CLOBAZAM. [Suspect]
     Active Substance: CLOBAZAM
     Indication: EPILEPSY
  6. PHENYTOIN. [Suspect]
     Active Substance: PHENYTOIN
     Indication: HEMIPLEGIA
     Route: 065
  7. EXCEGRAN [Suspect]
     Active Substance: ZONISAMIDE
     Indication: HEMIPLEGIA
     Route: 048
  8. CLONAZEPAM. [Suspect]
     Active Substance: CLONAZEPAM
     Indication: EPILEPSY
  9. VALPROIC ACID. [Suspect]
     Active Substance: VALPROIC ACID
     Indication: SEIZURE
     Route: 065
  10. CLONAZEPAM. [Suspect]
     Active Substance: CLONAZEPAM
     Indication: HEMIPLEGIA
     Route: 065
  11. E KEPPRA [Concomitant]
     Active Substance: LEVETIRACETAM
     Route: 065
  12. PHENYTOIN. [Suspect]
     Active Substance: PHENYTOIN
     Indication: SEIZURE
     Route: 065
  13. PHENYTOIN. [Suspect]
     Active Substance: PHENYTOIN
     Indication: EPILEPSY
     Route: 065
  14. EXCEGRAN [Suspect]
     Active Substance: ZONISAMIDE
     Indication: SEIZURE
     Route: 048
  15. VALPROIC ACID. [Suspect]
     Active Substance: VALPROIC ACID
     Indication: HEMIPLEGIA
     Route: 065
  16. VALPROIC ACID. [Suspect]
     Active Substance: VALPROIC ACID
     Indication: EPILEPSY
     Route: 065
  17. CARBAMAZEPINE. [Concomitant]
     Active Substance: CARBAMAZEPINE
     Route: 065
  18. CLONAZEPAM. [Suspect]
     Active Substance: CLONAZEPAM
     Indication: SEIZURE
     Route: 065

REACTIONS (8)
  - Peripheral motor neuropathy [Unknown]
  - Anticonvulsant drug level increased [Unknown]
  - Hyporeflexia [Unknown]
  - Hypercapnia [Unknown]
  - Hypoventilation [Recovered/Resolved]
  - Motor dysfunction [Unknown]
  - Hypokinesia [Unknown]
  - Nystagmus [Recovered/Resolved]
